FAERS Safety Report 14581506 (Version 6)
Quarter: 2021Q3

REPORT INFORMATION
  Report Type: Spontaneous
  Country: ES (occurrence: ES)
  Receive Date: 20180228
  Receipt Date: 20210713
  Transmission Date: 20211014
  Serious: Yes (Hospitalization, Other)
  Sender: FDA-Public Use
  Company Number: ES-009507513-1802ESP010085

PATIENT
  Age: 67 Year
  Sex: Male

DRUGS (2)
  1. ADVAGRAF [Interacting]
     Active Substance: TACROLIMUS
     Indication: RENAL TRANSPLANT
     Dosage: 5 MG, QD
     Route: 048
     Dates: start: 20160824, end: 20171121
  2. INVANZ [Suspect]
     Active Substance: ERTAPENEM SODIUM
     Indication: UROSEPSIS
     Dosage: 1 G, QD
     Route: 042
     Dates: start: 20171106, end: 20171119

REACTIONS (4)
  - Product use in unapproved indication [Unknown]
  - Hallucination, visual [Recovered/Resolved]
  - Confusional state [Recovered/Resolved]
  - Muscular weakness [Recovered/Resolved]

NARRATIVE: CASE EVENT DATE: 20171117
